FAERS Safety Report 10192034 (Version 1)
Quarter: 2014Q2

REPORT INFORMATION
  Report Type: Spontaneous
  Country: CA (occurrence: CA)
  Receive Date: 20140523
  Receipt Date: 20140523
  Transmission Date: 20141212
  Serious: Yes (Other)
  Sender: FDA-Public Use
  Company Number: CA-PFIZER INC-2014139243

PATIENT
  Age: 17 Year
  Sex: Female

DRUGS (8)
  1. AMLODIPINE BESILATE [Suspect]
     Dosage: UNK
  2. INTELENCE [Suspect]
     Dosage: 200 MG, 2X/DAY
  3. MONOPRIL [Suspect]
     Dosage: UNK
  4. PREZISTA [Suspect]
     Dosage: 600 MG, 2X/DAY
  5. RITONAVIR [Suspect]
     Dosage: 100 MG, 2X/DAY
  6. TENOFOVIR [Suspect]
     Dosage: 300 MG, 1X/DAY
  7. TRIZIVIR [Suspect]
     Dosage: UNK
  8. ISENTRESS [Concomitant]
     Dosage: UNK

REACTIONS (3)
  - Pneumonia staphylococcal [Unknown]
  - Bacteraemia [Unknown]
  - Drug ineffective [Unknown]
